FAERS Safety Report 8950878 (Version 3)
Quarter: 2013Q1

REPORT INFORMATION
  Report Type: Spontaneous
  Country: US (occurrence: None)
  Receive Date: 20121128
  Receipt Date: 20130131
  Transmission Date: 20140127
  Serious: Yes (Death, Hospitalization)
  Sender: FDA-Public Use
  Company Number: 2012-JP-0019

PATIENT
  Age: 67 Year
  Sex: Female

DRUGS (7)
  1. FARESTON [Suspect]
     Indication: BREAST CANCER
     Dosage: 5 MONTH
     Route: 048
     Dates: start: 20110727, end: 20111228
  2. LYRICA (PREGABALIN) [Suspect]
     Indication: CANCER PAIN
     Dosage: DURATION, 11 WEEKS, ONE DAY.
     Route: 048
     Dates: start: 20111012, end: 20111228
  3. METASTRON (STRONTIUM) [Concomitant]
  4. LOXOPROFEN (LOXOPROFEN SODIUM) [Concomitant]
  5. LENDORMIN (BROTIZOLAM) [Concomitant]
  6. TRAMAL (TRAMADOL HYDROCHLORIDE) [Concomitant]
  7. ZOMETA (ZOLEDRONIC ACID) [Concomitant]

REACTIONS (6)
  - Thrombosis [None]
  - Disseminated intravascular coagulation [None]
  - Metastases to liver [None]
  - Anaemia [None]
  - Platelet count decreased [None]
  - Malaise [None]
